FAERS Safety Report 6403728-7 (Version None)
Quarter: 2009Q4

REPORT INFORMATION
  Report Type: 
  Country: None (occurrence: None)
  Receive Date: 20091015
  Receipt Date: 20091015
  Transmission Date: 20100525
  Serious: Yes (Hospitalization, Disabling, Other)
  Sender: FDA-Public Use
  Company Number: None

PATIENT
  Age: 44 Year
  Sex: Male
  Weight: 68.9467 kg

DRUGS (2)
  1. CIPROFLAXACIN [Suspect]
     Indication: POSTOPERATIVE CARE
     Dosage: 1 TAB TWICE A DAY PO
     Route: 048
     Dates: start: 20081024, end: 20081122
  2. CIPROFLAXACIN [Suspect]
     Indication: PREOPERATIVE CARE
     Dosage: 1 TAB TWICE A DAY PO
     Route: 048
     Dates: start: 20081024, end: 20081122

REACTIONS (2)
  - MUSCULOSKELETAL PAIN [None]
  - TENDON RUPTURE [None]
